FAERS Safety Report 14184699 (Version 1)
Quarter: 2017Q4

REPORT INFORMATION
  Report Type: Spontaneous
  Country: US (occurrence: US)
  Receive Date: 20171113
  Receipt Date: 20171113
  Transmission Date: 20180321
  Serious: No
  Sender: FDA-Public Use
  Company Number: US-BAUSCH-BL-2017-025712

PATIENT
  Age: 10 Year
  Sex: Male
  Weight: 34.05 kg

DRUGS (2)
  1. ALAWAY [Suspect]
     Active Substance: KETOTIFEN FUMARATE
     Indication: HYPERSENSITIVITY
  2. ALAWAY [Suspect]
     Active Substance: KETOTIFEN FUMARATE
     Indication: PRURITUS
     Dosage: 6 TIMES
     Route: 047
     Dates: start: 20170820, end: 20170824

REACTIONS (2)
  - Eye irritation [Recovered/Resolved]
  - Pain [Unknown]

NARRATIVE: CASE EVENT DATE: 20170822
